FAERS Safety Report 11136975 (Version 1)
Quarter: 2015Q2

REPORT INFORMATION
  Report Type: Spontaneous
  Country: GB (occurrence: GB)
  Receive Date: 20150526
  Receipt Date: 20150526
  Transmission Date: 20150821
  Serious: Yes (Disabling, Congenital Anomaly)
  Sender: FDA-Public Use
  Company Number: GB-BRISTOL-MYERS SQUIBB COMPANY-BMS-2015-030996

PATIENT
  Age: 1 Hour
  Sex: Male
  Weight: 3 kg

DRUGS (3)
  1. RITONAVIR. [Suspect]
     Active Substance: RITONAVIR
     Indication: PROPHYLAXIS AGAINST HIV INFECTION
     Route: 064
     Dates: start: 20140731, end: 20150427
  2. ATAZANAVIR SULFATE [Suspect]
     Active Substance: ATAZANAVIR SULFATE
     Indication: PROPHYLAXIS AGAINST HIV INFECTION
     Route: 064
     Dates: start: 20140731, end: 20150427
  3. KIVEXA [Suspect]
     Active Substance: ABACAVIR SULFATE\LAMIVUDINE
     Indication: PROPHYLAXIS AGAINST HIV INFECTION
     Route: 064
     Dates: start: 20140731, end: 20150424

REACTIONS (6)
  - Kidney duplex [Not Recovered/Not Resolved]
  - Congenital ureterocele [Not Recovered/Not Resolved]
  - Umbilical cord abnormality [Recovered/Resolved]
  - Congenital central nervous system anomaly [Unknown]
  - Foetal exposure during pregnancy [Recovered/Resolved]
  - Foetal cystic hygroma [Recovered/Resolved]
